FAERS Safety Report 5647267-X (Version None)
Quarter: 2008Q1

REPORT INFORMATION
  Report Type: 
  Country: None (occurrence: None)
  Receive Date: 20080131
  Receipt Date: 20071203
  Transmission Date: 20080703
  Serious: No
  Sender: FDA-Public Use
  Company Number: 163-21880-07120178

PATIENT
  Age: 58 Year
  Sex: Female

DRUGS (2)
  1. REVLIMID [Suspect]
     Indication: MULTIPLE MYELOMA
     Dosage: X20 DAYS EVERY 28 DAYS, ORAL ; 10 MG, DAILY 28/28, ORAL
     Route: 048
     Dates: start: 20070525, end: 20070801
  2. REVLIMID [Suspect]
     Indication: MULTIPLE MYELOMA
     Dosage: X20 DAYS EVERY 28 DAYS, ORAL ; 10 MG, DAILY 28/28, ORAL
     Route: 048
     Dates: start: 20070913

REACTIONS (1)
  - FATIGUE [None]
